FAERS Safety Report 5946020-7 (Version None)
Quarter: 2008Q4

REPORT INFORMATION
  Report Type: 
  Country: None (occurrence: None)
  Receive Date: 20081110
  Receipt Date: 20081029
  Transmission Date: 20090506
  Serious: Yes (Hospitalization)
  Sender: FDA-Public Use
  Company Number: JP-BAYER-200812619BYL

PATIENT
  Age: 79 Year
  Sex: Male

DRUGS (8)
  1. ASPIRIN [Suspect]
     Indication: DRUG USE FOR UNKNOWN INDICATION
     Route: 048
     Dates: end: 20080524
  2. NORSHIN [Suspect]
     Indication: HEADACHE
     Route: 048
     Dates: start: 20080522, end: 20080522
  3. BUFFERIN A [Suspect]
     Indication: PYREXIA
     Route: 048
     Dates: start: 20080523, end: 20080524
  4. EUGLUCON [Suspect]
     Indication: DIABETES MELLITUS
     Route: 048
     Dates: end: 20080524
  5. BASEN [Suspect]
     Indication: DIABETES MELLITUS
     Route: 048
     Dates: end: 20080524
  6. HALFDIGOXIN [Suspect]
     Indication: DRUG USE FOR UNKNOWN INDICATION
     Route: 048
     Dates: end: 20080524
  7. QUINAPRIL HCL [Concomitant]
     Indication: HYPERTENSION
     Route: 048
  8. AMLODIN OD [Concomitant]
     Indication: HYPERTENSION
     Route: 048

REACTIONS (1)
  - TOXIC EPIDERMAL NECROLYSIS [None]
